FAERS Safety Report 25227938 (Version 1)
Quarter: 2025Q2

REPORT INFORMATION
  Report Type: Spontaneous
  Country: US (occurrence: US)
  Receive Date: 20250423
  Receipt Date: 20250423
  Transmission Date: 20250717
  Serious: No
  Sender: SANOFI AVENTIS
  Company Number: US-SA-2025SA115209

PATIENT
  Age: 20 Year
  Sex: Female

DRUGS (2)
  1. DUPIXENT [Suspect]
     Active Substance: DUPILUMAB
     Indication: Dermatitis atopic
     Dosage: 300 MG, QOW
     Route: 058
  2. AQUAPHOR [Concomitant]
     Active Substance: PETROLATUM
     Indication: Eczema

REACTIONS (3)
  - Rash pruritic [Unknown]
  - Skin fissures [Unknown]
  - Rash [Unknown]

NARRATIVE: CASE EVENT DATE: 20250401
